FAERS Safety Report 9357916 (Version 1)
Quarter: 2013Q2

REPORT INFORMATION
  Report Type: Spontaneous
  Country: US (occurrence: None)
  Receive Date: 20130619
  Receipt Date: 20130619
  Transmission Date: 20140414
  Serious: Yes (Other)
  Sender: FDA-Public Use
  Company Number: None

PATIENT
  Age: 27 Year
  Sex: Female

DRUGS (2)
  1. REMICADE [Suspect]
     Indication: RHEUMATOID ARTHRITIS
     Dosage: 120 ML 4 WKS IV
     Route: 042
  2. REMICADE [Suspect]
     Indication: BEHCET^S SYNDROME
     Dosage: 120 ML 4 WKS IV
     Route: 042

REACTIONS (2)
  - Infusion site extravasation [None]
  - Product quality issue [None]
